FAERS Safety Report 8130004-7 (Version None)
Quarter: 2012Q1

REPORT INFORMATION
  Report Type: 
  Country: None (occurrence: None)
  Receive Date: 20120210
  Receipt Date: 20120202
  Transmission Date: 20120608
  Serious: Yes (Other)
  Sender: FDA-Public Use
  Company Number: BR-ABBOTT-12P-020-0901287-00

PATIENT
  Sex: Female
  Weight: 39 kg

DRUGS (4)
  1. PREDNISONE TAB [Suspect]
     Indication: PRODUCT USED FOR UNKNOWN INDICATION
  2. HUMIRA [Suspect]
     Indication: RHEUMATOID ARTHRITIS
     Route: 058
     Dates: start: 20100312
  3. TIROXIN [Concomitant]
     Indication: THYROID DISORDER
     Dosage: 1 TABLET IN FASTING
     Route: 048
  4. ALENDRONATE SODIUM [Suspect]
     Indication: MUSCULOSKELETAL PAIN
     Dosage: 1 TABLET PER WEEK
     Route: 048

REACTIONS (21)
  - INJECTION SITE PAIN [None]
  - NERVOUSNESS [None]
  - ARTHRITIS [None]
  - INJECTION SITE DISCOLOURATION [None]
  - ARTHRALGIA [None]
  - ANXIETY [None]
  - IMPAIRED HEALING [None]
  - SPINAL OSTEOARTHRITIS [None]
  - JOINT INJURY [None]
  - OSTEOARTHRITIS [None]
  - OEDEMA PERIPHERAL [None]
  - NERVE INJURY [None]
  - JOINT RANGE OF MOTION DECREASED [None]
  - ASTHENIA [None]
  - PAIN IN EXTREMITY [None]
  - OSTEOPENIA [None]
  - FALL [None]
  - OSTEOPOROSIS [None]
  - DEFORMITY [None]
  - CRYING [None]
  - CHEST PAIN [None]
